FAERS Safety Report 7986993-4 (Version None)
Quarter: 2011Q4

REPORT INFORMATION
  Report Type: 
  Country: None (occurrence: None)
  Receive Date: 20111216
  Receipt Date: 20111214
  Transmission Date: 20120403
  Serious: No
  Sender: FDA-Public Use
  Company Number: US-BAYER-2011-120773

PATIENT
  Age: 53 Year
  Sex: Female

DRUGS (1)
  1. MAGNEVIST [Suspect]
     Indication: NUCLEAR MAGNETIC RESONANCE IMAGING BRAIN
     Dosage: 15 ML, ONCE ANTICUBITAL
     Route: 042
     Dates: start: 20111213

REACTIONS (4)
  - EYE PRURITUS [None]
  - URTICARIA [None]
  - NASAL CONGESTION [None]
  - THROAT IRRITATION [None]
